FAERS Safety Report 8349625-1 (Version None)
Quarter: 2012Q2

REPORT INFORMATION
  Report Type: 
  Country: None (occurrence: None)
  Receive Date: 20120510
  Receipt Date: 20120503
  Transmission Date: 20120825
  Serious: Yes (Life-Threatening, Hospitalization)
  Sender: FDA-Public Use
  Company Number: GB-BAYER-2012-043077

PATIENT
  Age: 64 Year
  Sex: Male
  Weight: 78 kg

DRUGS (3)
  1. CLOPIDOGREL [Suspect]
     Dosage: UNK
     Route: 002
     Dates: start: 20120404, end: 20120413
  2. ENOXAPARIN [Suspect]
     Indication: PROPHYLAXIS
     Dosage: UNK
     Dates: start: 20120404
  3. ASPIRIN [Suspect]
     Dosage: UNK
     Route: 002
     Dates: start: 20120404, end: 20120413

REACTIONS (5)
  - ABDOMINAL COMPARTMENT SYNDROME [None]
  - HAEMODYNAMIC INSTABILITY [None]
  - MECHANICAL VENTILATION COMPLICATION [None]
  - RETROPERITONEAL HAEMATOMA [None]
  - RENAL IMPAIRMENT [None]
